FAERS Safety Report 7266901-4 (Version None)
Quarter: 2011Q1

REPORT INFORMATION
  Report Type: 
  Country: None (occurrence: None)
  Receive Date: 20110201
  Receipt Date: 20110119
  Transmission Date: 20110831
  Serious: Yes (Hospitalization, Other)
  Sender: FDA-Public Use
  Company Number: US-ELI_LILLY_AND_COMPANY-US201101005279

PATIENT
  Age: 76 Year
  Sex: Female

DRUGS (9)
  1. NIFEDIPINE [Concomitant]
  2. CRANBERRY [Concomitant]
  3. PROPRANOLOL [Concomitant]
  4. AMBIEN [Concomitant]
  5. ZOFRAN [Concomitant]
  6. PROMETHAZINE [Concomitant]
  7. SULFASALAZINE [Concomitant]
  8. PROZAC [Suspect]
     Indication: DEPRESSION
     Dosage: 60 MG, DAILY (1/D)
     Dates: start: 20101001
  9. PROZAC [Suspect]
     Dosage: 40 MG, DAILY (1/D)

REACTIONS (4)
  - DECREASED APPETITE [None]
  - NAUSEA [None]
  - SURGERY [None]
  - HOSPITALISATION [None]
